FAERS Safety Report 5234432-9 (Version None)
Quarter: 2007Q1

REPORT INFORMATION
  Report Type: 
  Country: None (occurrence: None)
  Receive Date: 20070208
  Receipt Date: 20070208
  Transmission Date: 20070707
  Serious: Yes (Hospitalization)
  Sender: FDA-Public Use
  Company Number: None

PATIENT
  Sex: Male

DRUGS (2)
  1. OXALIPLATIN [Suspect]
     Dosage: 220 MG Q 21 DAYS IV
     Route: 042
  2. DOCETAXEL [Suspect]
     Dosage: 132 MG Q 21 DAYS IV
     Route: 042

REACTIONS (6)
  - BLOOD GLUCOSE ABNORMAL [None]
  - DEHYDRATION [None]
  - DEPRESSION [None]
  - DIARRHOEA [None]
  - GENERAL PHYSICAL HEALTH DETERIORATION [None]
  - PROTHROMBIN TIME ABNORMAL [None]
